FAERS Safety Report 13054111 (Version 1)
Quarter: 2016Q4

REPORT INFORMATION
  Report Type: Spontaneous
  Country: US (occurrence: US)
  Receive Date: 20161222
  Receipt Date: 20161222
  Transmission Date: 20170207
  Serious: Yes (Hospitalization)
  Sender: FDA-Public Use
  Company Number: None

PATIENT
  Age: 68 Year
  Sex: Male
  Weight: 73.7 kg

DRUGS (4)
  1. OXYCODONE [Concomitant]
     Active Substance: OXYCODONE
  2. DEXAMETHASONE. [Concomitant]
     Active Substance: DEXAMETHASONE
  3. MEMANTINE HYDROCHLORIDE. [Suspect]
     Active Substance: MEMANTINE HYDROCHLORIDE
     Dates: end: 20161204
  4. NIVOLIMUAB [Concomitant]

REACTIONS (14)
  - Abdominal pain upper [None]
  - Dizziness postural [None]
  - Fatigue [None]
  - Oedema peripheral [None]
  - Cerebral haemorrhage [None]
  - Metastases to liver [None]
  - Metastases to central nervous system [None]
  - Condition aggravated [None]
  - Nausea [None]
  - Peripheral motor neuropathy [None]
  - Balance disorder [None]
  - Walking aid user [None]
  - Atelectasis [None]
  - Decreased appetite [None]

NARRATIVE: CASE EVENT DATE: 20161202
